FAERS Safety Report 10575063 (Version 2)
Quarter: 2014Q4

REPORT INFORMATION
  Report Type: Spontaneous
  Country: IT (occurrence: IT)
  Receive Date: 20141111
  Receipt Date: 20141111
  Transmission Date: 20150529
  Serious: Yes (Death)
  Sender: FDA-Public Use
  Company Number: IT-CIPLA LTD.-2014IT01615

PATIENT

DRUGS (4)
  1. BLEOMYCIN [Suspect]
     Active Substance: BLEOMYCIN SULFATE
     Indication: CHEMOTHERAPY
     Dosage: 4 CYCLES EVERY 3 WEEKS
  2. ETOPOSIDE. [Suspect]
     Active Substance: ETOPOSIDE
     Indication: CHEMOTHERAPY
     Dosage: 4 CYCLES EVERY 3 WEEKS
  3. CARBOPLATIN. [Suspect]
     Active Substance: CARBOPLATIN
     Indication: CHEMOTHERAPY
     Dosage: AUC 27 MG/ML X MIN
  4. CISPLATIN. [Suspect]
     Active Substance: CISPLATIN
     Indication: CHEMOTHERAPY
     Dosage: 4 CYCLES EVERY 3 WEEKS

REACTIONS (1)
  - Septic shock [Fatal]
